FAERS Safety Report 6989348-4 (Version None)
Quarter: 2010Q3

REPORT INFORMATION
  Report Type: 
  Country: None (occurrence: None)
  Receive Date: 20100916
  Receipt Date: 20091108
  Transmission Date: 20110219
  Serious: Yes (Hospitalization, Other)
  Sender: FDA-Public Use
  Company Number: US-PFIZER INC-2009294676

PATIENT
  Sex: Female

DRUGS (9)
  1. LYRICA [Suspect]
  2. PENICILLIN G PROCAINE [Suspect]
  3. BETASERON [Suspect]
     Indication: MULTIPLE SCLEROSIS RELAPSE
     Dosage: 8 MILLIONIU,
     Route: 058
     Dates: start: 19940104
  4. BETASERON [Suspect]
     Dosage: 8 MILLIONIU,ALTERNATE DAY/ONE YEAR
     Route: 058
     Dates: end: 20090817
  5. CARBATROL [Suspect]
     Dosage: UNK
     Route: 065
     Dates: end: 20090601
  6. DEPAKOTE [Suspect]
  7. TEGRETOL [Suspect]
  8. TRILEPTAL [Suspect]
  9. EFFEXOR [Concomitant]
     Indication: DEPRESSION

REACTIONS (15)
  - ABDOMINAL ADHESIONS [None]
  - BLOODY DISCHARGE [None]
  - DEPRESSION [None]
  - FALL [None]
  - GENERALISED OEDEMA [None]
  - INTESTINAL STRANGULATION [None]
  - LOWER LIMB FRACTURE [None]
  - MOBILITY DECREASED [None]
  - OEDEMA [None]
  - PAIN OF SKIN [None]
  - RASH [None]
  - RENAL DISORDER [None]
  - SKIN EXFOLIATION [None]
  - SKIN FISSURES [None]
  - SWELLING [None]
